FAERS Safety Report 8200768-2 (Version None)
Quarter: 2012Q1

REPORT INFORMATION
  Report Type: 
  Country: None (occurrence: None)
  Receive Date: 20120305
  Receipt Date: 20110902
  Transmission Date: 20120608
  Serious: Yes (Other)
  Sender: FDA-Public Use
  Company Number: 2011030030

PATIENT
  Age: 77 Year
  Sex: Female

DRUGS (7)
  1. PRIVIGEN [Suspect]
     Indication: MYASTHENIA GRAVIS
     Dosage: 80 G, ONCE AT MAXIMUM RATE OF 300 ML/HR, INTRAVENOUS (NOT OTHERWISE SPECIFIED)
     Route: 042
     Dates: start: 20110818, end: 20110818
  2. CLONAZEPAN(CLONAZEPAM [Concomitant]
  3. CALCIUM WITH VITAMIN D (CALCIUM WITH VITAMIN D) [Concomitant]
  4. PRIVIGEN [Suspect]
  5. MESTINON [Concomitant]
  6. MIRTAZAPINE [Concomitant]
  7. PREDNISONE TAB [Concomitant]

REACTIONS (7)
  - PYREXIA [None]
  - OFF LABEL USE [None]
  - HEADACHE [None]
  - ANTI-ERYTHROCYTE ANTIBODY POSITIVE [None]
  - SEROLOGY ABNORMAL [None]
  - CHILLS [None]
  - HAEMOLYTIC TRANSFUSION REACTION [None]
